FAERS Safety Report 8837128 (Version 1)
Quarter: 2012Q4

REPORT INFORMATION
  Report Type: 
  Country: GB (occurrence: GB)
  Receive Date: 20121012
  Receipt Date: 20121012
  Transmission Date: 20130627
  Serious: Yes (Other)
  Sender: FDA-Public Use
  Company Number: GB-MYLANLABS-2012S1020486

PATIENT
  Sex: Female

DRUGS (3)
  1. BUPIVACAINE W/FENTANYL [Suspect]
     Indication: EPIDURAL ANAESTHESIA
     Dosage: 0.1% bupivacaine, 2 microg/mL fentanyl
     Route: 008
  2. REMIFENTANIL [Suspect]
     Indication: ANALGESIC THERAPY
     Dosage: PCA regimen: 40microg/mL in 0.9% NaCl, 1mL bolus, 2min lockout; received 160microg total
     Route: 041
  3. SYNTOCINON [Concomitant]
     Indication: LABOUR INDUCTION
     Route: 041

REACTIONS (2)
  - Respiratory arrest [Recovering/Resolving]
  - Toxicity to various agents [Recovering/Resolving]
